FAERS Safety Report 13400855 (Version 3)
Quarter: 2024Q3

REPORT INFORMATION
  Report Type: Spontaneous
  Country: US (occurrence: US)
  Receive Date: 20170404
  Receipt Date: 20240701
  Transmission Date: 20241017
  Serious: Yes (Hospitalization, Other)
  Sender: INCYTE
  Company Number: US-INCYTE CORPORATION-2017IN002304

PATIENT

DRUGS (7)
  1. JAKAFI [Suspect]
     Active Substance: RUXOLITINIB
     Indication: Polycythaemia vera
     Dosage: 20 MG, BID
     Route: 048
     Dates: start: 20150116
  2. JAKAFI [Suspect]
     Active Substance: RUXOLITINIB
     Dosage: 10 MG, BID
     Route: 048
  3. JAKAFI [Suspect]
     Active Substance: RUXOLITINIB
     Dosage: 10 MG AM AND 20 MG PM
     Route: 048
     Dates: start: 20160315
  4. JAKAFI [Suspect]
     Active Substance: RUXOLITINIB
     Dosage: 20 MG AM AND 20 MG PM
     Route: 048
     Dates: start: 20160721
  5. JAKAFI [Suspect]
     Active Substance: RUXOLITINIB
     Dosage: 35 MILLIGRAM, QD
     Route: 048
  6. ASPIRIN [Suspect]
     Active Substance: ASPIRIN
     Indication: Product used for unknown indication
     Dosage: UNK
     Route: 065
     Dates: end: 201609
  7. AMLODIPINE [Concomitant]
     Active Substance: AMLODIPINE BESYLATE
     Indication: Product used for unknown indication
     Dosage: 5 MILLIGRAM
     Route: 065

REACTIONS (22)
  - Depression [Unknown]
  - Rectal haemorrhage [Unknown]
  - Chest pain [Unknown]
  - Pollakiuria [Unknown]
  - Platelet count increased [Unknown]
  - Back pain [Recovering/Resolving]
  - Pyrexia [Unknown]
  - Insomnia [Unknown]
  - Weight decreased [Unknown]
  - Decreased appetite [Unknown]
  - Amnesia [Unknown]
  - Haemorrhoids [Unknown]
  - Epistaxis [Recovered/Resolved]
  - Fatigue [Unknown]
  - Blood urine present [Recovering/Resolving]
  - Incorrect dose administered [Unknown]
  - Balance disorder [Unknown]
  - Constipation [Unknown]
  - Dizziness [Unknown]
  - Herpes zoster [Unknown]
  - Contusion [Unknown]
  - Anaemia [Unknown]

NARRATIVE: CASE EVENT DATE: 20150101
